FAERS Safety Report 9292844 (Version 2)
Quarter: 2013Q2

REPORT INFORMATION
  Report Type: Spontaneous
  Country: US (occurrence: US)
  Receive Date: 20130516
  Receipt Date: 20130527
  Transmission Date: 20140414
  Serious: Yes (Congenital Anomaly, Other)
  Sender: FDA-Public Use
  Company Number: US-PFIZER INC-2013149133

PATIENT
  Sex: Female

DRUGS (6)
  1. ZOLOFT [Suspect]
     Dosage: UNK
     Route: 064
     Dates: start: 1996, end: 2001
  2. TYLENOL [Concomitant]
     Dosage: UNK
     Route: 064
  3. PAXIL [Concomitant]
     Dosage: UNK
     Route: 064
  4. PROZAC [Concomitant]
     Dosage: UNK
     Route: 064
  5. WELLBUTRIN [Concomitant]
     Dosage: UNK
     Route: 064
  6. FLINTSTONE CHEWABLE VITAMINS [Concomitant]
     Dosage: UNK
     Route: 064

REACTIONS (5)
  - Maternal exposure during pregnancy [Unknown]
  - Pulmonary artery stenosis congenital [Unknown]
  - Patent ductus arteriosus [Unknown]
  - Pulmonary valve stenosis congenital [Unknown]
  - Atrial septal defect [Unknown]
